FAERS Safety Report 24850923 (Version 1)
Quarter: 2025Q1

REPORT INFORMATION
  Report Type: Report from Study
  Country: US (occurrence: US)
  Receive Date: 20250116
  Receipt Date: 20250116
  Transmission Date: 20250408
  Serious: Yes (Other)
  Sender: EISAI
  Company Number: US-Eisai-EC-2025-182330

PATIENT
  Age: 78 Year
  Sex: Female

DRUGS (20)
  1. LENVIMA [Suspect]
     Active Substance: LENVATINIB
     Indication: Thyroid cancer
     Dosage: STOPPED: //2023
     Route: 048
     Dates: start: 20230203
  2. LENVIMA [Suspect]
     Active Substance: LENVATINIB
     Dosage: REDUCE DOSAGE?POSSIBLE INCREASE IN DOSE UNSURE WHY OR WHEN
     Route: 048
     Dates: start: 2023
  3. MELOXICAM [Concomitant]
     Active Substance: MELOXICAM
  4. CLONIDINE HC [Concomitant]
  5. PROLIA [Concomitant]
     Active Substance: DENOSUMAB
  6. ALBUTEROL SU AER [Concomitant]
  7. AMLODIPINE B [Concomitant]
  8. AMOXICILLIN [Concomitant]
     Active Substance: AMOXICILLIN
  9. LEVOCETIRIZI [Concomitant]
  10. LEVOTHYROXINE [Concomitant]
     Active Substance: LEVOTHYROXINE
  11. LISINOPRIL [Concomitant]
     Active Substance: LISINOPRIL
  12. METFORMIN HYDROCHLORIDE [Concomitant]
     Active Substance: METFORMIN HYDROCHLORIDE
  13. MONTELUKAST [Concomitant]
     Active Substance: MONTELUKAST
  14. OMEPRAZOLE [Concomitant]
     Active Substance: OMEPRAZOLE
  15. ROSUVASTATIN [Concomitant]
     Active Substance: ROSUVASTATIN
  16. ASPIRIN [Concomitant]
     Active Substance: ASPIRIN
  17. ATORVASTATIN [Concomitant]
     Active Substance: ATORVASTATIN
  18. CORTISONE AC [Concomitant]
  19. DICLOFENAC [Concomitant]
     Active Substance: DICLOFENAC
  20. ONDANSETRON [Concomitant]
     Active Substance: ONDANSETRON

REACTIONS (3)
  - Cerebrovascular accident [Not Recovered/Not Resolved]
  - Cataract [Not Recovered/Not Resolved]
  - Vomiting [Not Recovered/Not Resolved]

NARRATIVE: CASE EVENT DATE: 20250101
